FAERS Safety Report 10414307 (Version 1)
Quarter: 2014Q3

REPORT INFORMATION
  Report Type: Spontaneous
  Country: GB (occurrence: GB)
  Receive Date: 20140828
  Receipt Date: 20140828
  Transmission Date: 20150326
  Serious: Yes (Disabling, Other)
  Sender: FDA-Public Use
  Company Number: PHHY2014GB104926

PATIENT
  Age: 77 Year
  Sex: Female

DRUGS (14)
  1. OMEPRAZOLE. [Concomitant]
     Active Substance: OMEPRAZOLE
     Dates: start: 20140429, end: 20140806
  2. PARACETAMOL [Concomitant]
     Active Substance: ACETAMINOPHEN
     Dates: start: 20140429, end: 20140729
  3. PREGABALIN. [Concomitant]
     Active Substance: PREGABALIN
     Dates: start: 20140429, end: 20140806
  4. CALCIUM CARBONATE. [Concomitant]
     Active Substance: CALCIUM CARBONATE
     Dates: start: 20140527, end: 20140528
  5. CALCIUM CARBONATE. [Concomitant]
     Active Substance: CALCIUM CARBONATE
     Dates: start: 20140623, end: 20140624
  6. LEVOTHYROXINE [Concomitant]
     Active Substance: LEVOTHYROXINE
     Dates: start: 20140429, end: 20140806
  7. ALENDRONIC ACID [Concomitant]
     Active Substance: ALENDRONIC ACID
     Dates: start: 20140429, end: 20140806
  8. FENTANYL. [Concomitant]
     Active Substance: FENTANYL
     Dates: start: 20140618, end: 20140619
  9. TRIMETHOPRIM. [Concomitant]
     Active Substance: TRIMETHOPRIM
     Dates: start: 20140507, end: 20140521
  10. CALCIUM CARBONATE. [Concomitant]
     Active Substance: CALCIUM CARBONATE
     Dates: start: 20140709, end: 20140710
  11. FENTANYL. [Concomitant]
     Active Substance: FENTANYL
     Dates: start: 20140514, end: 20140515
  12. MELOXICAM. [Concomitant]
     Active Substance: MELOXICAM
     Dates: start: 20140429, end: 20140721
  13. CITALOPRAM [Suspect]
     Active Substance: CITALOPRAM HYDROBROMIDE
     Dates: start: 20140808
  14. FENTANYL. [Concomitant]
     Active Substance: FENTANYL
     Dates: start: 20140709, end: 20140710

REACTIONS (2)
  - Malaise [Recovered/Resolved]
  - Nausea [Recovered/Resolved]

NARRATIVE: CASE EVENT DATE: 20140808
